FAERS Safety Report 24685274 (Version 1)
Quarter: 2024Q4

REPORT INFORMATION
  Report Type: Spontaneous
  Country: US (occurrence: None)
  Receive Date: 20241127
  Receipt Date: 20241127
  Transmission Date: 20250115
  Serious: Yes (Hospitalization)
  Sender: Public
  Company Number: None

PATIENT
  Age: 79 Year
  Sex: Male
  Weight: 91 kg

DRUGS (3)
  1. APIXABAN [Suspect]
     Active Substance: APIXABAN
     Indication: Atrial fibrillation
     Dosage: FREQUENCY : TWICE A DAY;?
     Route: 048
  2. PENTOXIFYLLINE [Suspect]
     Active Substance: PENTOXIFYLLINE
  3. ASPIRIN [Suspect]
     Active Substance: ASPIRIN

REACTIONS (3)
  - Anaemia [None]
  - Melaena [None]
  - Peritonitis [None]

NARRATIVE: CASE EVENT DATE: 20240619
